FAERS Safety Report 8458317-X (Version None)
Quarter: 2012Q2

REPORT INFORMATION
  Report Type: 
  Country: None (occurrence: None)
  Receive Date: 20120615
  Receipt Date: 20120605
  Transmission Date: 20120825
  Serious: Yes (Other)
  Sender: FDA-Public Use
  Company Number: DKLU1081561

PATIENT
  Age: 13 Year
  Sex: Male

DRUGS (1)
  1. ONFI [Suspect]
     Indication: PRODUCT USED FOR UNKNOWN INDICATION
     Dosage: 5; 10MG, AM, ORAL
     Route: 048
     Dates: start: 20120518

REACTIONS (3)
  - COMPLEX PARTIAL SEIZURES [None]
  - DYSURIA [None]
  - INFECTION [None]
